FAERS Safety Report 5364713-X (Version None)
Quarter: 2007Q2

REPORT INFORMATION
  Report Type: 
  Country: None (occurrence: None)
  Receive Date: 20070530
  Receipt Date: 20070219
  Transmission Date: 20071010
  Serious: No
  Sender: FDA-Public Use
  Company Number: 2006PV007799

PATIENT
  Age: 51 Year
  Sex: Male

DRUGS (5)
  1. BYETTA [Suspect]
     Indication: DIABETES MELLITUS NON-INSULIN-DEPENDENT
     Dosage: 10 MCG;BID;SC; 5 MCG;BID;SC
     Route: 058
     Dates: start: 20051229, end: 20060128
  2. BYETTA [Suspect]
     Indication: DIABETES MELLITUS NON-INSULIN-DEPENDENT
     Dosage: 10 MCG;BID;SC; 5 MCG;BID;SC
     Route: 058
     Dates: start: 20060129
  3. BYETTA [Suspect]
  4. METFORMIN HCL [Concomitant]
  5. GLIPIZIDE [Concomitant]

REACTIONS (11)
  - ASTHENIA [None]
  - BLOOD POTASSIUM DECREASED [None]
  - DECREASED APPETITE [None]
  - FEELING ABNORMAL [None]
  - HEADACHE [None]
  - INJECTION SITE HAEMORRHAGE [None]
  - LOSS OF CONSCIOUSNESS [None]
  - NAUSEA [None]
  - OVERDOSE [None]
  - VOMITING [None]
  - WEIGHT DECREASED [None]
